FAERS Safety Report 6016236-2 (Version None)
Quarter: 2008Q4

REPORT INFORMATION
  Report Type: 
  Country: None (occurrence: None)
  Receive Date: 20081222
  Receipt Date: 20081215
  Transmission Date: 20090506
  Serious: Yes (Hospitalization)
  Sender: FDA-Public Use
  Company Number: US-AVENTIS-200821295GDDC

PATIENT
  Age: 46 Year
  Sex: Male
  Weight: 91.8 kg

DRUGS (13)
  1. DOCETAXEL [Suspect]
     Indication: TONSIL CANCER
     Route: 042
     Dates: start: 20081027, end: 20081117
  2. RADIATION THERAPY [Suspect]
     Indication: TONSIL CANCER
  3. MORPHINE [Concomitant]
  4. METOCLOPRAMIDE [Concomitant]
  5. CLINDAMYCIN [Concomitant]
  6. LIDOCAINE HCL VISCOUS [Concomitant]
  7. RANITIDINE [Concomitant]
  8. CITALOPRAM HYDROBROMIDE [Concomitant]
  9. ODANSETRON [Concomitant]
  10. LACTULOSE [Concomitant]
  11. METHADONE HCL [Concomitant]
  12. MULTI-VITAMINS [Concomitant]
  13. ASPIRIN [Concomitant]

REACTIONS (4)
  - DEHYDRATION [None]
  - HEPATITIS [None]
  - MUCOSAL INFLAMMATION [None]
  - RENAL FAILURE ACUTE [None]
